FAERS Safety Report 10205572 (Version 1)
Quarter: 2014Q2

REPORT INFORMATION
  Report Type: Spontaneous
  Country: US (occurrence: US)
  Receive Date: 20140529
  Receipt Date: 20140529
  Transmission Date: 20141212
  Serious: Yes (Other)
  Sender: FDA-Public Use
  Company Number: US-FRI-1000067552

PATIENT
  Age: 60 Year
  Sex: Female

DRUGS (7)
  1. SAVELLA [Suspect]
     Indication: FIBROMYALGIA
     Dosage: 12.5 MG
     Dates: start: 2014, end: 2014
  2. SAVELLA [Suspect]
     Dosage: 25 MG
     Dates: start: 2014, end: 2014
  3. SAVELLA [Suspect]
     Dosage: 50 MG
     Dates: start: 2014, end: 2014
  4. SAVELLA [Suspect]
     Indication: FIBROMYALGIA
     Dosage: 100 MG
     Dates: start: 2014, end: 2014
  5. SAVELLA [Suspect]
     Indication: FIBROMYALGIA
     Dosage: 25 MG
     Dates: start: 2014, end: 2014
  6. SAVELLA [Suspect]
     Indication: FIBROMYALGIA
     Dosage: 50 MG
     Dates: start: 2014, end: 2014
  7. INSULIN [Concomitant]
     Indication: DIABETES MELLITUS

REACTIONS (3)
  - Blood glucose increased [Recovered/Resolved]
  - Weight decreased [Recovered/Resolved]
  - Vision blurred [Recovered/Resolved]
